FAERS Safety Report 12708858 (Version 1)
Quarter: 2016Q3

REPORT INFORMATION
  Report Type: Spontaneous
  Country: US (occurrence: US)
  Receive Date: 20160901
  Receipt Date: 20160901
  Transmission Date: 20161109
  Serious: No
  Sender: FDA-Public Use
  Company Number: US-JAZZ-2016-US-008265

PATIENT
  Sex: Female

DRUGS (27)
  1. NEXIUM [Concomitant]
     Active Substance: ESOMEPRAZOLE MAGNESIUM
  2. YASMIN [Concomitant]
     Active Substance: DROSPIRENONE\ETHINYL ESTRADIOL
  3. XYREM [Suspect]
     Active Substance: SODIUM OXYBATE
     Dosage: DOSE ADJUSTMENTS
     Route: 048
  4. CLARITIN [Concomitant]
     Active Substance: LORATADINE
  5. PROVIGIL [Concomitant]
     Active Substance: MODAFINIL
  6. RESTASIS [Concomitant]
     Active Substance: CYCLOSPORINE
  7. B-COMPLEX PLUS B-12 [Concomitant]
  8. RISPERDAL [Concomitant]
     Active Substance: RISPERIDONE
  9. METFORMIN HCL [Concomitant]
     Active Substance: METFORMIN HYDROCHLORIDE
  10. ESZOPICLONE. [Concomitant]
     Active Substance: ESZOPICLONE
  11. NUVIGIL [Concomitant]
     Active Substance: ARMODAFINIL
  12. METOPROLOL SUCCINATE ER [Concomitant]
     Active Substance: METOPROLOL SUCCINATE
  13. VITAMIN D [Concomitant]
     Active Substance: CHOLECALCIFEROL
  14. BUSPIRONE HCL [Concomitant]
     Active Substance: BUSPIRONE HYDROCHLORIDE
  15. AMITRIPTYLINE HCL [Concomitant]
     Active Substance: AMITRIPTYLINE
  16. XYREM [Suspect]
     Active Substance: SODIUM OXYBATE
     Indication: NARCOLEPSY
     Dosage: 2.5 G, BID
     Route: 048
     Dates: start: 200807, end: 200808
  17. XYREM [Suspect]
     Active Substance: SODIUM OXYBATE
     Dosage: 2.75 G, BID
     Route: 048
     Dates: start: 201001, end: 2010
  18. XYREM [Suspect]
     Active Substance: SODIUM OXYBATE
     Dosage: 5 G, BID
     Route: 048
     Dates: start: 201503
  19. ALPRAZOLAM. [Concomitant]
     Active Substance: ALPRAZOLAM
  20. SYNTHROID [Concomitant]
     Active Substance: LEVOTHYROXINE SODIUM
  21. XYREM [Suspect]
     Active Substance: SODIUM OXYBATE
     Indication: CATAPLEXY
     Dosage: 3 G, BID
     Route: 048
     Dates: start: 200808, end: 200810
  22. TRAMADOL. [Suspect]
     Active Substance: TRAMADOL
     Indication: PRODUCT USED FOR UNKNOWN INDICATION
     Dosage: UNK
  23. ADDERALL [Concomitant]
     Active Substance: AMPHETAMINE ASPARTATE\AMPHETAMINE SULFATE\DEXTROAMPHETAMINE SACCHARATE\DEXTROAMPHETAMINE SULFATE
  24. PROZAC [Concomitant]
     Active Substance: FLUOXETINE HYDROCHLORIDE
  25. ALDACTONE [Concomitant]
     Active Substance: SPIRONOLACTONE
  26. XYREM [Suspect]
     Active Substance: SODIUM OXYBATE
     Dosage: 3.5 G, BID
     Route: 048
     Dates: start: 200810, end: 2008
  27. DAYPRO [Concomitant]
     Active Substance: OXAPROZIN

REACTIONS (1)
  - Nausea [Unknown]
